FAERS Safety Report 6638702-9 (Version None)
Quarter: 2010Q1

REPORT INFORMATION
  Report Type: 
  Country: None (occurrence: None)
  Receive Date: 20100312
  Receipt Date: 20100301
  Transmission Date: 20100710
  Serious: Yes (Hospitalization)
  Sender: FDA-Public Use
  Company Number: 008307

PATIENT
  Sex: Female

DRUGS (5)
  1. CERTOLIZUMAB PEGOL (CERTOLIZUMAB PEGOL) [Suspect]
     Indication: RHEUMATOID ARTHRITIS
     Dosage: SUBCUTANEOUS
     Route: 058
     Dates: start: 20091116
  2. PREDNISOLONE [Suspect]
     Indication: RHEUMATOID ARTHRITIS
     Dosage: 2. 5 MG QD
     Dates: start: 20081211
  3. KETOPROFEN [Concomitant]
  4. AMLODIPINE BESILATE [Concomitant]
  5. ECABET MONOSOIDUM [Concomitant]

REACTIONS (3)
  - ARTHRITIS BACTERIAL [None]
  - DEVICE RELATED INFECTION [None]
  - STAPHYLOCOCCAL INFECTION [None]
